FAERS Safety Report 9857428 (Version 1)
Quarter: 2014Q1

REPORT INFORMATION
  Report Type: Report from Study
  Country: US (occurrence: US)
  Receive Date: 20140131
  Receipt Date: 20140131
  Transmission Date: 20141002
  Serious: Yes (Other)
  Sender: FDA-Public Use
  Company Number: US-ROCHE-1341216

PATIENT
  Age: 82 Year
  Sex: Male

DRUGS (1)
  1. LUCENTIS [Suspect]
     Indication: MACULAR DEGENERATION
     Dosage: RIGHT EYE
     Route: 050
     Dates: start: 2012

REACTIONS (4)
  - Arrhythmia [Unknown]
  - Prothrombin time shortened [Unknown]
  - Balance disorder [Unknown]
  - Fall [Unknown]
